FAERS Safety Report 14538921 (Version 2)
Quarter: 2018Q1

REPORT INFORMATION
  Report Type: Spontaneous
  Country: US (occurrence: US)
  Receive Date: 20180216
  Receipt Date: 20180309
  Transmission Date: 20180509
  Serious: Yes (Other)
  Sender: FDA-Public Use
  Company Number: US-PFIZER INC-2018019015

PATIENT
  Age: 32 Year
  Sex: Female

DRUGS (1)
  1. SUTENT [Suspect]
     Active Substance: SUNITINIB MALATE
     Indication: METASTASES TO LUNG
     Dosage: 37.5 MG, DAILY
     Dates: start: 201801

REACTIONS (27)
  - Vomiting [Unknown]
  - Dizziness [Unknown]
  - Syncope [Unknown]
  - Dysphagia [Recovered/Resolved]
  - Dry skin [Unknown]
  - Decreased appetite [Unknown]
  - Epistaxis [Unknown]
  - Hyperhidrosis [Unknown]
  - Depressed mood [Unknown]
  - Nausea [Unknown]
  - Weight decreased [Unknown]
  - Asthenia [Unknown]
  - Chills [Unknown]
  - Product use in unapproved indication [Unknown]
  - Dyspnoea [Unknown]
  - Abdominal pain upper [Unknown]
  - Hair texture abnormal [Unknown]
  - Abdominal pain [Unknown]
  - Pain [Unknown]
  - Respiratory tract congestion [Unknown]
  - Depression [Unknown]
  - Yellow skin [Unknown]
  - Feeling abnormal [Unknown]
  - Fatigue [Unknown]
  - Dysgeusia [Unknown]
  - Arthralgia [Unknown]
  - Loss of personal independence in daily activities [Unknown]
